FAERS Safety Report 7079198-5 (Version None)
Quarter: 2010Q4

REPORT INFORMATION
  Report Type: 
  Country: None (occurrence: None)
  Receive Date: 20101102
  Receipt Date: 20101022
  Transmission Date: 20110411
  Serious: Yes (Other)
  Sender: FDA-Public Use
  Company Number: B0680239A

PATIENT
  Sex: Female
  Weight: 86.2 kg

DRUGS (2)
  1. DUAC [Suspect]
     Route: 061
  2. DICLOCIL [Concomitant]

REACTIONS (2)
  - APPLICATION SITE INFLAMMATION [None]
  - ERYTHEMA [None]
